FAERS Safety Report 9915870 (Version 2)
Quarter: 2014Q1

REPORT INFORMATION
  Report Type: Spontaneous
  Country: DE (occurrence: None)
  Receive Date: 20140218
  Receipt Date: 20140221
  Transmission Date: 20141002
  Serious: Yes (Hospitalization)
  Sender: FDA-Public Use
  Company Number: 7268566

PATIENT
  Age: 58 Year
  Sex: Female

DRUGS (1)
  1. EUTHYROX [Suspect]
     Indication: POST PROCEDURAL HYPOTHYROIDISM
     Route: 048
     Dates: start: 20140201, end: 20140201

REACTIONS (1)
  - Atrial fibrillation [None]
